FAERS Safety Report 8314209-8 (Version None)
Quarter: 2012Q2

REPORT INFORMATION
  Report Type: 
  Country: None (occurrence: None)
  Receive Date: 20120426
  Receipt Date: 20120419
  Transmission Date: 20120825
  Serious: Yes (Hospitalization, Other)
  Sender: FDA-Public Use
  Company Number: PHFR2012GB002441

PATIENT
  Sex: Male

DRUGS (3)
  1. CLOZARIL [Suspect]
     Indication: SCHIZOPHRENIA
     Route: 048
     Dates: start: 19971103
  2. CLOZARIL [Suspect]
     Dosage: 400 MG, QD
     Route: 048
  3. CLOZARIL [Suspect]
     Dosage: 200 MG, UNK
     Route: 048

REACTIONS (5)
  - LOWER RESPIRATORY TRACT INFECTION [None]
  - LOSS OF CONSCIOUSNESS [None]
  - BLOOD CREATINE PHOSPHOKINASE INCREASED [None]
  - ANTIPSYCHOTIC DRUG LEVEL INCREASED [None]
  - RENAL IMPAIRMENT [None]
